FAERS Safety Report 9499914 (Version 1)
Quarter: 2013Q3

REPORT INFORMATION
  Report Type: Spontaneous
  Country: US (occurrence: US)
  Receive Date: 20130905
  Receipt Date: 20130905
  Transmission Date: 20140515
  Serious: No
  Sender: FDA-Public Use
  Company Number: US-PFIZER INC-2013255868

PATIENT
  Age: 67 Year
  Sex: Female
  Weight: 49.89 kg

DRUGS (2)
  1. FLAGYL [Suspect]
     Indication: ABDOMINAL ABSCESS
     Dosage: 500 MG, 3X/DAY
     Dates: start: 20130519, end: 201308
  2. MINOCYCLINE [Suspect]
     Indication: ABDOMINAL ABSCESS
     Dosage: 100 MG, 2X/DAY
     Dates: start: 20130519

REACTIONS (1)
  - Paraesthesia [Not Recovered/Not Resolved]
